FAERS Safety Report 24934894 (Version 2)
Quarter: 2025Q3

REPORT INFORMATION
  Report Type: Spontaneous
  Country: BR (occurrence: BR)
  Receive Date: 20250206
  Receipt Date: 20250720
  Transmission Date: 20251021
  Serious: Yes (Other)
  Sender: JOHNSON AND JOHNSON
  Company Number: BR-JNJFOC-20250180018

PATIENT
  Age: 69 Year
  Sex: Male

DRUGS (2)
  1. DARATUMUMAB [Suspect]
     Active Substance: DARATUMUMAB
     Indication: Product used for unknown indication
  2. TALVEY [Suspect]
     Active Substance: TALQUETAMAB-TGVS
     Indication: Product used for unknown indication

REACTIONS (8)
  - Cardiac failure [Unknown]
  - Leukopenia [Unknown]
  - Anaemia [Unknown]
  - Oedema peripheral [Unknown]
  - Taste disorder [Unknown]
  - Onychomadesis [Unknown]
  - Weight decreased [Unknown]
  - Ataxia [Unknown]
